FAERS Safety Report 14910115 (Version 1)
Quarter: 2018Q2

REPORT INFORMATION
  Report Type: Spontaneous
  Country: US (occurrence: US)
  Receive Date: 20180517
  Receipt Date: 20180517
  Transmission Date: 20180711
  Serious: Yes (Hospitalization)
  Sender: FDA-Public Use
  Company Number: US-TEVA-2018-US-892484

PATIENT
  Age: 16 Year
  Sex: Female

DRUGS (1)
  1. DEPOT MEDROXYPROGESTERONE ACETATE [Suspect]
     Active Substance: MEDROXYPROGESTERONE ACETATE
     Indication: DYSMENORRHOEA
     Route: 065

REACTIONS (1)
  - Uterine haemorrhage [Recovered/Resolved]
